FAERS Safety Report 6246309-0 (Version None)
Quarter: 2009Q2

REPORT INFORMATION
  Report Type: 
  Country: None (occurrence: None)
  Receive Date: 20090626
  Receipt Date: 20090615
  Transmission Date: 20091009
  Serious: No
  Sender: FDA-Public Use
  Company Number: US-B.I. PHARMACEUTICALS,INC./RIDGEFIELD-2009-BP-07407BP

PATIENT
  Sex: Male
  Weight: 72.57 kg

DRUGS (1)
  1. MIRAPEX [Suspect]
     Indication: PARKINSON'S DISEASE
     Dates: start: 20010901, end: 20081101

REACTIONS (3)
  - PATHOLOGICAL GAMBLING [None]
  - SEDATION [None]
  - STRESS [None]
